FAERS Safety Report 15595568 (Version 5)
Quarter: 2018Q4

REPORT INFORMATION
  Report Type: Spontaneous
  Country: BR (occurrence: BR)
  Receive Date: 20181107
  Receipt Date: 20181226
  Transmission Date: 20190205
  Serious: Yes (Other)
  Sender: FDA-Public Use
  Company Number: BR-AMGEN-BRASP2018135138

PATIENT
  Age: 55 Year
  Sex: Female

DRUGS (2)
  1. ENBREL [Suspect]
     Active Substance: ETANERCEPT
     Indication: PSORIASIS
     Dosage: 50 MG, WEEKLY
     Route: 065
     Dates: start: 20181011
  2. ENBREL [Suspect]
     Active Substance: ETANERCEPT
     Indication: OSTEITIS
     Dosage: UNK
     Route: 065

REACTIONS (11)
  - Bone disorder [Not Recovered/Not Resolved]
  - Peripheral swelling [Not Recovered/Not Resolved]
  - Crying [Unknown]
  - Malaise [Unknown]
  - Pain [Unknown]
  - Joint injury [Unknown]
  - Bipolar disorder [Unknown]
  - Fall [Unknown]
  - Arthropathy [Unknown]
  - Head discomfort [Unknown]
  - Drug effect incomplete [Not Recovered/Not Resolved]
